FAERS Safety Report 6806891-9 (Version None)
Quarter: 2010Q2

REPORT INFORMATION
  Report Type: 
  Country: None (occurrence: None)
  Receive Date: 20100629
  Receipt Date: 20080606
  Transmission Date: 20101027
  Serious: No
  Sender: FDA-Public Use
  Company Number: US-PFIZER INC-2008042783

PATIENT
  Sex: Female
  Weight: 86.4 kg

DRUGS (4)
  1. ALPRAZOLAM [Suspect]
     Indication: ANXIETY
     Dates: start: 19970101
  2. ALPRAZOLAM [Suspect]
     Indication: PANIC ATTACK
  3. METHADONE [Concomitant]
  4. ZANTAC [Concomitant]

REACTIONS (3)
  - ASTHMA [None]
  - DRUG INEFFECTIVE [None]
  - PANIC REACTION [None]
